FAERS Safety Report 8025191-5 (Version None)
Quarter: 2012Q1

REPORT INFORMATION
  Report Type: 
  Country: None (occurrence: None)
  Receive Date: 20120105
  Receipt Date: 20111108
  Transmission Date: 20120608
  Serious: Yes (Hospitalization)
  Sender: FDA-Public Use
  Company Number: JP-GLAXOSMITHKLINE-B0762183A

PATIENT
  Sex: Female

DRUGS (6)
  1. LAMICTAL [Suspect]
     Dosage: 100MG PER DAY
     Route: 048
     Dates: start: 20110623
  2. DEPAKENE [Concomitant]
     Indication: EPILEPSY
     Dosage: 800MG PER DAY
     Route: 048
     Dates: start: 20101013, end: 20101218
  3. LAMICTAL [Suspect]
     Indication: EPILEPSY
     Route: 048
     Dates: start: 20110315
  4. DEPAKENE [Concomitant]
     Dosage: 800MG PER DAY
     Route: 048
     Dates: start: 20110623
  5. LAMICTAL [Suspect]
     Dosage: 200MG PER DAY
     Route: 048
     Dates: end: 20111026
  6. DEPAKENE [Concomitant]
     Dosage: 1200MG PER DAY
     Route: 048
     Dates: start: 20101219

REACTIONS (9)
  - COGNITIVE DISORDER [None]
  - CEREBRAL VENTRICLE DILATATION [None]
  - HYDROCEPHALUS [None]
  - MEMORY IMPAIRMENT [None]
  - DECREASED APPETITE [None]
  - LISTLESS [None]
  - SOMNOLENCE [None]
  - NAUSEA [None]
  - VOMITING [None]
